FAERS Safety Report 5262441-2 (Version None)
Quarter: 2007Q1

REPORT INFORMATION
  Report Type: 
  Country: None (occurrence: None)
  Receive Date: 20070312
  Receipt Date: 20070307
  Transmission Date: 20070707
  Serious: Yes (Other)
  Sender: FDA-Public Use
  Company Number: IE-AVENTIS-200621980GDDC

PATIENT
  Sex: Male

DRUGS (10)
  1. LANTUS [Suspect]
     Route: 058
     Dates: start: 20060524
  2. NOVORAPID [Suspect]
     Route: 058
     Dates: start: 20060524
  3. COZAAR [Concomitant]
  4. PLAVIX [Concomitant]
  5. LASIX [Concomitant]
  6. LIPITOR [Concomitant]
  7. LYRICA [Concomitant]
  8. GLUCOPHAGE [Concomitant]
  9. ASPIRIN [Concomitant]
  10. ULCID                              /00416501/ [Concomitant]

REACTIONS (3)
  - CONDITION AGGRAVATED [None]
  - DIABETES MELLITUS INADEQUATE CONTROL [None]
  - VISUAL DISTURBANCE [None]
